FAERS Safety Report 23397328 (Version 2)
Quarter: 2024Q1

REPORT INFORMATION
  Report Type: Spontaneous
  Country: IT (occurrence: IT)
  Receive Date: 20240112
  Receipt Date: 20240306
  Transmission Date: 20240410
  Serious: Yes (Other)
  Sender: FDA-Public Use
  Company Number: IT-ROCHE-3483086

PATIENT
  Age: 65 Year
  Sex: Female

DRUGS (9)
  1. PREDNISONE [Suspect]
     Active Substance: PREDNISONE
     Indication: Follicular lymphoma
     Dosage: UNK, R-CHOP
     Route: 065
  2. DOXORUBICIN [Suspect]
     Active Substance: DOXORUBICIN
     Indication: Follicular lymphoma
     Dosage: UNK
     Route: 065
  3. BENDAMUSTINE HYDROCHLORIDE [Suspect]
     Active Substance: BENDAMUSTINE HYDROCHLORIDE
     Indication: Follicular lymphoma
     Dosage: UNK
     Route: 065
  4. RITUXIMAB [Suspect]
     Active Substance: RITUXIMAB
     Indication: Follicular lymphoma
     Dosage: UNK
     Route: 065
  5. VINCRISTINE [Suspect]
     Active Substance: VINCRISTINE
     Indication: Follicular lymphoma
     Dosage: UNK
     Route: 065
  6. CYCLOPHOSPHAMIDE [Suspect]
     Active Substance: CYCLOPHOSPHAMIDE
     Indication: Follicular lymphoma
     Dosage: UNK
     Route: 065
  7. ELASOMERAN [Suspect]
     Active Substance: ELASOMERAN
     Indication: Immunisation
     Dosage: UNK, FIRST MRNA-1273 VACCINE DOSE
     Route: 065
     Dates: start: 202103
  8. ELASOMERAN [Suspect]
     Active Substance: ELASOMERAN
     Dosage: UNK, SECOND MRNA-1273 VACCINE DOSE 28 DAYS LATER
     Route: 065
  9. ELASOMERAN [Suspect]
     Active Substance: ELASOMERAN
     Dosage: UNK, THIRD VACCINE DOSE BETWEEN DECEMBER 2021 AND JANUARY 2022
     Route: 065

REACTIONS (3)
  - COVID-19 [Unknown]
  - Breakthrough COVID-19 [Unknown]
  - Vaccination failure [Unknown]
